FAERS Safety Report 5143646-8 (Version None)
Quarter: 2006Q4

REPORT INFORMATION
  Report Type: 
  Country: None (occurrence: None)
  Receive Date: 20061103
  Receipt Date: 20061101
  Transmission Date: 20070319
  Serious: Yes (Death)
  Sender: FDA-Public Use
  Company Number: US-BRISTOL-MYERS SQUIBB COMPANY-13563192

PATIENT
  Age: 56 Year
  Sex: Female
  Weight: 62 kg

DRUGS (9)
  1. BMS582664 [Suspect]
     Indication: COLORECTAL CANCER METASTATIC
     Route: 048
     Dates: start: 20061005, end: 20061024
  2. LEUCOVORIN CALCIUM [Suspect]
     Route: 042
     Dates: start: 20061004, end: 20061018
  3. FLUOROURACIL [Suspect]
     Route: 042
     Dates: start: 20061004, end: 20061018
  4. IRINOTECAN HCL [Suspect]
     Route: 042
     Dates: start: 20061004, end: 20061018
  5. NEULASTA [Concomitant]
     Dates: start: 20061025, end: 20061025
  6. MAGNESIUM [Concomitant]
     Route: 042
     Dates: start: 20061025, end: 20061025
  7. ARANESP [Concomitant]
     Dates: start: 20061025, end: 20061025
  8. POTASSIUM CHLORIDE [Concomitant]
     Dates: start: 20061025, end: 20061025
  9. DEXTROSE 5% 1/2 NORMAL SALINE [Concomitant]
     Dates: start: 20061025, end: 20061025

REACTIONS (2)
  - DEATH [None]
  - MALIGNANT NEOPLASM PROGRESSION [None]
